FAERS Safety Report 7550764-3 (Version None)
Quarter: 2011Q2

REPORT INFORMATION
  Report Type: 
  Country: None (occurrence: None)
  Receive Date: 20110616
  Receipt Date: 20110602
  Transmission Date: 20111010
  Serious: Yes (Hospitalization)
  Sender: FDA-Public Use
  Company Number: JP-ASTRAZENECA-2011SE33741

PATIENT
  Sex: Male
  Weight: 60 kg

DRUGS (8)
  1. PLAVIX [Concomitant]
     Indication: THROMBOSIS PROPHYLAXIS
     Route: 048
     Dates: start: 20100930
  2. ECARD HD [Suspect]
     Indication: HYPERTENSION
     Route: 048
     Dates: start: 20110426
  3. ASPIRIN [Concomitant]
     Indication: THROMBOSIS PROPHYLAXIS
     Route: 048
     Dates: start: 20100929
  4. SYR-322 [Suspect]
     Indication: TYPE 2 DIABETES MELLITUS
     Route: 048
     Dates: start: 20101129
  5. ZOLPIDEM [Suspect]
     Indication: INSOMNIA
     Dosage: EVERY DAY
     Route: 048
     Dates: start: 20101010
  6. INNOLET 30R [Suspect]
     Indication: TYPE 2 DIABETES MELLITUS
     Route: 058
     Dates: start: 20101203
  7. SIGMART [Concomitant]
     Indication: CARDIOVASCULAR EVENT PROPHYLAXIS
     Route: 048
     Dates: start: 20101001
  8. FRANDOL TAPE [Concomitant]
     Indication: VASODILATATION
     Route: 062
     Dates: start: 20101001

REACTIONS (2)
  - ANGINA PECTORIS [None]
  - CARDIAC FAILURE CONGESTIVE [None]
